FAERS Safety Report 7915049-1 (Version None)
Quarter: 2011Q4

REPORT INFORMATION
  Report Type: 
  Country: None (occurrence: None)
  Receive Date: 20111115
  Receipt Date: 20111109
  Transmission Date: 20120403
  Serious: Yes (Hospitalization, Other)
  Sender: FDA-Public Use
  Company Number: US-BRISTOL-MYERS SQUIBB COMPANY-16221541

PATIENT
  Age: 59 Year
  Sex: Female

DRUGS (1)
  1. YERVOY [Suspect]
     Indication: METASTATIC MALIGNANT MELANOMA
     Dosage: SECOND TREATMENT WAS ON 26-OCT-2011.
     Dates: start: 20111005

REACTIONS (7)
  - ANAEMIA [None]
  - WHITE BLOOD CELL COUNT INCREASED [None]
  - FAILURE TO THRIVE [None]
  - HYPONATRAEMIA [None]
  - WEIGHT DECREASED [None]
  - CONFUSIONAL STATE [None]
  - ASTHENIA [None]
